FAERS Safety Report 8502259-8 (Version None)
Quarter: 2012Q3

REPORT INFORMATION
  Report Type: 
  Country: None (occurrence: None)
  Receive Date: 20120711
  Receipt Date: 20120627
  Transmission Date: 20120928
  Serious: Yes (Hospitalization, Other)
  Sender: FDA-Public Use
  Company Number: PL-RANBAXY-2012RR-56189

PATIENT
  Age: 17 Year
  Sex: Male

DRUGS (3)
  1. ISOTRETINOIN [Concomitant]
     Dosage: 30 MG/DAY
     Route: 065
  2. ISOTRETINOIN [Suspect]
     Indication: ACNE
     Dosage: ALTERNATING DAILY DOSES OF 40MG/DAY AND 20MG/DAY
     Route: 048
  3. ISOTRETINOIN [Concomitant]
     Dosage: 50 MG/DAY
     Route: 065

REACTIONS (6)
  - CHEILITIS [None]
  - MYALGIA [None]
  - DRY MOUTH [None]
  - NASAL DRYNESS [None]
  - ACNE FULMINANS [None]
  - BONE PAIN [None]
